FAERS Safety Report 8886196 (Version 1)
Quarter: 2012Q4

REPORT INFORMATION
  Report Type: 
  Country: US (occurrence: US)
  Receive Date: 20121105
  Receipt Date: 20121105
  Transmission Date: 20130627
  Serious: Yes (Other)
  Sender: FDA-Public Use
  Company Number: US-PFIZER INC-2012265747

PATIENT

DRUGS (1)
  1. XYNTHA [Suspect]
     Indication: BLEEDING
     Dosage: UNK

REACTIONS (2)
  - Drug effect decreased [Unknown]
  - Metrorrhagia [Unknown]
